FAERS Safety Report 16691808 (Version 2)
Quarter: 2019Q3

REPORT INFORMATION
  Report Type: Spontaneous
  Country: CN (occurrence: CN)
  Receive Date: 20190812
  Receipt Date: 20190904
  Transmission Date: 20191004
  Serious: Yes (Other)
  Sender: FDA-Public Use
  Company Number: CN-ACCORD-151247

PATIENT
  Age: 34 Year
  Sex: Male

DRUGS (4)
  1. ETOPOSIDE. [Suspect]
     Active Substance: ETOPOSIDE
     Indication: MALIGNANT NEOPLASM OF THYMUS
     Dosage: DAY 1-5 EVERY 3 WEEKS
     Dates: start: 20150105, end: 20150211
  2. CISPLATIN. [Suspect]
     Active Substance: CISPLATIN
     Indication: MALIGNANT NEOPLASM OF THYMUS
     Dosage: DAY 1-3 EVERY 3 WEEKS, ALSO RECEIVED FROM 14-NOV-2014 TO 07-DEC-2014
     Dates: start: 20150105, end: 20150211
  3. PYRIDOXINE [Concomitant]
     Active Substance: PYRIDOXINE
     Dosage: DAY 1
  4. CYCLOPHOSPHAMIDE/CYCLOPHOSPHAMIDE MONOHYDRATE [Concomitant]
     Dosage: DAY 1

REACTIONS (1)
  - Granulocytopenia [Recovered/Resolved]

NARRATIVE: CASE EVENT DATE: 2015
